FAERS Safety Report 20233701 (Version 1)
Quarter: 2021Q4

REPORT INFORMATION
  Report Type: Spontaneous
  Country: US (occurrence: US)
  Receive Date: 20211227
  Receipt Date: 20211227
  Transmission Date: 20220303
  Serious: No
  Sender: FDA-Public Use
  Company Number: US-SANOFI-00901867

PATIENT
  Age: 19 Year
  Sex: Male

DRUGS (2)
  1. DUPIXENT [Suspect]
     Active Substance: DUPILUMAB
     Indication: Dermatitis atopic
     Dosage: 600 MG, 1X
     Route: 058
  2. DUPIXENT [Suspect]
     Active Substance: DUPILUMAB
     Dosage: 300 MG, QOW
     Route: 058

REACTIONS (6)
  - Eye swelling [Recovering/Resolving]
  - Eye discharge [Not Recovered/Not Resolved]
  - Ocular hyperaemia [Recovering/Resolving]
  - Eyelid margin crusting [Recovering/Resolving]
  - Eye inflammation [Recovering/Resolving]
  - Eye irritation [Recovering/Resolving]
